FAERS Safety Report 4984552-9 (Version None)
Quarter: 2006Q2

REPORT INFORMATION
  Report Type: 
  Country: None (occurrence: None)
  Receive Date: 20060427
  Receipt Date: 20050427
  Transmission Date: 20061013
  Serious: No
  Sender: FDA-Public Use
  Company Number: US-GLAXOSMITHKLINE-A0556040A

PATIENT
  Age: 9 Year
  Sex: Male

DRUGS (2)
  1. DEXEDRINE [Suspect]
     Indication: ATTENTION DEFICIT/HYPERACTIVITY DISORDER
     Dosage: 15MG PER DAY
     Route: 048
     Dates: start: 20041216
  2. NO CONCURRENT MEDICATION [Concomitant]

REACTIONS (2)
  - FACIAL SPASM [None]
  - TIC [None]
